FAERS Safety Report 6971861-7 (Version None)
Quarter: 2010Q3

REPORT INFORMATION
  Report Type: 
  Country: None (occurrence: None)
  Receive Date: 20100908
  Receipt Date: 20100908
  Transmission Date: 20110219
  Serious: Yes (Hospitalization)
  Sender: FDA-Public Use
  Company Number: None

PATIENT
  Sex: Female
  Weight: 49.9 kg

DRUGS (8)
  1. ABRAXANE [Suspect]
     Indication: PANCREATIC CARCINOMA
     Dosage: 147 MG D1, D8, D15/CYCLE IV
     Route: 042
     Dates: start: 20100812, end: 20100819
  2. VANDETANIB [Suspect]
     Indication: PANCREATIC CARCINOMA
     Dosage: 300 MG QD X 28 DAYS PO
     Route: 048
     Dates: start: 20100812, end: 20100823
  3. OMEPRAZOLE [Concomitant]
  4. VICODIN [Concomitant]
  5. COLACE [Concomitant]
  6. MIRALAX [Concomitant]
  7. COMPAZINE [Concomitant]
  8. FLOMAX [Concomitant]

REACTIONS (3)
  - CHILLS [None]
  - ORTHOSTATIC HYPOTENSION [None]
  - PYREXIA [None]
